FAERS Safety Report 10606140 (Version 1)
Quarter: 2014Q4

REPORT INFORMATION
  Report Type: Report from Study
  Country: CN (occurrence: CN)
  Receive Date: 20141125
  Receipt Date: 20141125
  Transmission Date: 20150529
  Serious: Yes (Death)
  Sender: FDA-Public Use
  Company Number: CN-ACTELION-A-CH2014-108313

PATIENT
  Age: 36 Year
  Sex: Female

DRUGS (4)
  1. VENTAVIS [Suspect]
     Active Substance: ILOPROST
     Dosage: 1-2 TIMES PER DAY
     Route: 055
  2. SILDENAFIL. [Concomitant]
     Active Substance: SILDENAFIL
  3. DIGITALIS [Concomitant]
     Active Substance: DIGITALIS
  4. VENTAVIS [Suspect]
     Active Substance: ILOPROST
     Indication: PULMONARY ARTERIAL HYPERTENSION
     Dosage: 3 TO 5 TIMES PER DAY
     Route: 055
     Dates: start: 20090818

REACTIONS (3)
  - Productive cough [Unknown]
  - Death [Fatal]
  - Asthenia [Unknown]

NARRATIVE: CASE EVENT DATE: 20090818
